FAERS Safety Report 8859590 (Version 1)
Quarter: 2012Q4

REPORT INFORMATION
  Report Type: 
  Country: US (occurrence: US)
  Receive Date: 20121025
  Receipt Date: 20121025
  Transmission Date: 20130627
  Serious: Yes (Other)
  Sender: FDA-Public Use
  Company Number: US-SANOFI-AVENTIS-2012SA076640

PATIENT
  Age: 73 Year
  Sex: Male

DRUGS (4)
  1. LANTUS SOLOSTAR [Suspect]
     Indication: DIABETES
     Dosage: Dose:10 unit(s)
     Route: 058
  2. LANTUS SOLOSTAR [Suspect]
     Indication: DIABETES
     Dosage: Dose:10 unit(s)
     Route: 058
  3. LANTUS SOLOSTAR [Suspect]
     Indication: DIABETES
     Dosage: Dose:12 unit(s)
     Route: 058
  4. SOLOSTAR [Suspect]
     Indication: DIABETES
     Dates: start: 20120925

REACTIONS (3)
  - Ocular vascular disorder [Unknown]
  - Lacrimation increased [Unknown]
  - Blood glucose increased [Not Recovered/Not Resolved]
